FAERS Safety Report 24008910 (Version 1)
Quarter: 2024Q2

REPORT INFORMATION
  Report Type: Spontaneous
  Country: US (occurrence: US)
  Receive Date: 20240625
  Receipt Date: 20240625
  Transmission Date: 20240716
  Serious: No
  Sender: FDA-Public Use
  Company Number: US-BANNER LIFE SCIENCES, LLC-2023BAN000153

PATIENT

DRUGS (1)
  1. BAFIERTAM [Suspect]
     Active Substance: MONOMETHYL FUMARATE
     Indication: Multiple sclerosis
     Dosage: 180 MILLIGRAM, BID
     Route: 065
     Dates: start: 20230614

REACTIONS (2)
  - Dry throat [Unknown]
  - Headache [Unknown]

NARRATIVE: CASE EVENT DATE: 20230601
